FAERS Safety Report 5555167-9 (Version None)
Quarter: 2007Q4

REPORT INFORMATION
  Report Type: 
  Country: None (occurrence: None)
  Receive Date: 20071213
  Receipt Date: 20071205
  Transmission Date: 20080405
  Serious: Yes (Hospitalization)
  Sender: FDA-Public Use
  Company Number: FR-WYE-H01575007

PATIENT
  Sex: Female

DRUGS (13)
  1. CORDARONE [Suspect]
     Route: 048
  2. KEPPRA [Suspect]
     Indication: EPILEPSY
     Dosage: UNSPECIFIED
     Route: 048
     Dates: end: 20060801
  3. KEPPRA [Suspect]
     Route: 048
     Dates: start: 20060801
  4. PREVISCAN [Suspect]
     Indication: PULMONARY EMBOLISM
     Route: 048
     Dates: end: 20070911
  5. COZAAR [Concomitant]
     Route: 048
  6. ECONAZOLE NITRATE [Concomitant]
     Dosage: 1 UNIT EVERY 1 DAY
  7. HEMIGOXINE NATIVELLE [Concomitant]
     Route: 048
  8. NEURONTIN [Concomitant]
     Route: 048
  9. VALIUM [Concomitant]
     Dosage: 10 MG PRN
     Route: 048
  10. DIFFU K [Concomitant]
     Route: 048
  11. PENTASA [Concomitant]
     Route: 048
  12. KARDEGIC [Suspect]
     Route: 048
  13. FUROSEMIDE [Concomitant]
     Route: 048

REACTIONS (2)
  - INTERNATIONAL NORMALISED RATIO INCREASED [None]
  - VAGINAL HAEMORRHAGE [None]
